FAERS Safety Report 7287336-4 (Version None)
Quarter: 2011Q1

REPORT INFORMATION
  Report Type: 
  Country: None (occurrence: None)
  Receive Date: 20110211
  Receipt Date: 20110131
  Transmission Date: 20110831
  Serious: Yes (Hospitalization)
  Sender: FDA-Public Use
  Company Number: GB-JNJFOC-20110202425

PATIENT
  Age: 21 Year
  Sex: Female

DRUGS (7)
  1. TRAMADOL HCL [Suspect]
     Indication: ABDOMINAL PAIN
     Route: 065
  2. IBUPROFEN [Concomitant]
  3. CYCLIZINE [Concomitant]
  4. SUMATRIPTAN [Concomitant]
  5. OMEPRAZOLE [Concomitant]
  6. TRAMADOL HCL [Suspect]
     Route: 065
  7. METOCLOPRAMIDE HCL [Concomitant]

REACTIONS (1)
  - SECONDARY ADRENOCORTICAL INSUFFICIENCY [None]
